FAERS Safety Report 6026705-7 (Version None)
Quarter: 2008Q4

REPORT INFORMATION
  Report Type: 
  Country: None (occurrence: None)
  Receive Date: 20081222
  Receipt Date: 20080925
  Transmission Date: 20090506
  Serious: No
  Sender: FDA-Public Use
  Company Number: US-WYE-H06146808

PATIENT
  Sex: Female

DRUGS (11)
  1. PRISTIQ [Suspect]
     Indication: DEPRESSION
     Dosage: 50 MG 1X PER 1 DAY, ORAL
     Route: 048
     Dates: start: 20080901
  2. LOTENSIN [Concomitant]
  3. ATENOLOL [Concomitant]
  4. PREVACID [Concomitant]
  5. REGLAN [Concomitant]
  6. XANAX [Concomitant]
  7. LIPITOR [Concomitant]
  8. CALCIUM (CALCIUM) [Concomitant]
  9. MULTIVITAMINS (ASCORBIC ACID/ERGOCALCIFEROL/FOLIC ACID/NICOTINAMIDE/PA [Concomitant]
  10. CLINDAMYCIN (CLINIDAMYCIN) [Concomitant]
  11. PREDNISONE [Concomitant]

REACTIONS (6)
  - ABDOMINAL DISCOMFORT [None]
  - ASTHENIA [None]
  - CHILLS [None]
  - FATIGUE [None]
  - HYPERHIDROSIS [None]
  - VOMITING [None]
